FAERS Safety Report 9244360 (Version 3)
Quarter: 2013Q4

REPORT INFORMATION
  Report Type: Spontaneous
  Country: US (occurrence: None)
  Receive Date: 20121128
  Receipt Date: 20131211
  Transmission Date: 20140711
  Serious: Yes (Hospitalization, Other)
  Sender: FDA-Public Use
  Company Number: 003-091

PATIENT
  Age: 76 Year
  Sex: Male
  Weight: 103 kg

DRUGS (4)
  1. CROFAB [Suspect]
     Indication: SNAKE BITE
     Dosage: 4 VIALS
     Dates: start: 20120906, end: 20120906
  2. LIPITOR [Concomitant]
  3. FLOMAX [Concomitant]
  4. ARICEPT (DONEPEZIL) [Concomitant]

REACTIONS (9)
  - Dyspnoea [None]
  - Wheezing [None]
  - Hypotension [None]
  - Heart rate increased [None]
  - Rash maculo-papular [None]
  - Anxiety [None]
  - Hypersensitivity [None]
  - Respiratory distress [None]
  - Local swelling [None]
